FAERS Safety Report 5558568-8 (Version None)
Quarter: 2007Q4

REPORT INFORMATION
  Report Type: 
  Country: None (occurrence: None)
  Receive Date: 20071214
  Receipt Date: 20070914
  Transmission Date: 20080405
  Serious: No
  Sender: FDA-Public Use
  Company Number: US-ABBOTT-07P-163-0416000-00

PATIENT
  Sex: Female
  Weight: 63.56 kg

DRUGS (3)
  1. HUMIRA [Suspect]
     Indication: CROHN'S DISEASE
     Route: 058
     Dates: start: 20070827
  2. HUMIRA [Suspect]
     Dates: start: 20070911, end: 20070911
  3. HUMIRA [Suspect]
     Route: 058

REACTIONS (2)
  - CHILLS [None]
  - HEADACHE [None]
